FAERS Safety Report 9695074 (Version 1)
Quarter: 2013Q4

REPORT INFORMATION
  Report Type: Spontaneous
  Country: US (occurrence: US)
  Receive Date: 20131119
  Receipt Date: 20131119
  Transmission Date: 20140711
  Serious: Yes (Other)
  Sender: FDA-Public Use
  Company Number: PHEH2013US023853

PATIENT
  Age: 70 Year
  Sex: Female

DRUGS (6)
  1. EXFORGE [Suspect]
     Dosage: 1 DF, (160/5 MG) PER DAY
  2. METOPROLOL [Concomitant]
     Dosage: 1 DF, (100 MG) PER DAY
  3. CLONIDINE HYDROCHLORIDE [Concomitant]
     Dosage: 0.1 MG, UNK
  4. SIMVASTATIN [Concomitant]
     Dosage: 1 DF, (20 MG) PER DAY
  5. ASPIRIN [Concomitant]
  6. EQUATE (ACETYLSALICYLIC ACID) [Concomitant]

REACTIONS (7)
  - Renal cyst [Unknown]
  - Renal failure acute [Unknown]
  - Blood creatinine decreased [Unknown]
  - Pyrexia [Unknown]
  - Pain [Unknown]
  - Malaise [Unknown]
  - Hypotension [Unknown]
